FAERS Safety Report 7198053-3 (Version None)
Quarter: 2010Q4

REPORT INFORMATION
  Report Type: 
  Country: None (occurrence: None)
  Receive Date: 20101213
  Receipt Date: 20101202
  Transmission Date: 20110411
  Serious: Yes (Life-Threatening, Hospitalization)
  Sender: FDA-Public Use
  Company Number: 773036

PATIENT
  Age: 55 Year
  Sex: Male

DRUGS (2)
  1. OXALIPLATIN [Suspect]
     Indication: COLON CANCER
     Dosage: 85 MG/M 2 MILLIGRAM(S) /SQ. METER (2 WEEK) INTRAVENOUS DRIP
     Route: 041
     Dates: start: 20100823, end: 20101122
  2. (DEXAMETHASONE) [Concomitant]

REACTIONS (3)
  - ANAPHYLACTIC REACTION [None]
  - BLADDER SPHINCTER ATONY [None]
  - EPILEPSY [None]
